FAERS Safety Report 24876674 (Version 2)
Quarter: 2025Q1

REPORT INFORMATION
  Report Type: Spontaneous
  Country: US (occurrence: US)
  Receive Date: 20250123
  Receipt Date: 20250203
  Transmission Date: 20250408
  Serious: No
  Sender: Kenvue
  Company Number: US-KENVUE-20250100555

PATIENT
  Age: 54 Year
  Sex: Female

DRUGS (4)
  1. TYLENOL [Suspect]
     Active Substance: ACETAMINOPHEN
     Indication: Pain
     Route: 065
     Dates: start: 201506
  2. LEVOFLOXACIN [Concomitant]
     Active Substance: LEVOFLOXACIN
     Indication: Respiratory tract infection
     Dosage: 500 MILLIGRAM, TWICE A DAY
     Route: 065
     Dates: start: 20150622, end: 20150628
  3. AUGMENTIN [Concomitant]
     Active Substance: AMOXICILLIN\CLAVULANATE POTASSIUM
     Indication: Product used for unknown indication
     Route: 065
     Dates: start: 20150615, end: 20150619
  4. ADVIL [Concomitant]
     Active Substance: IBUPROFEN
     Indication: Pain
     Route: 065
     Dates: start: 201506

REACTIONS (1)
  - Drug ineffective [Unknown]
